FAERS Safety Report 22030697 (Version 1)
Quarter: 2023Q1

REPORT INFORMATION
  Report Type: Spontaneous
  Country: DE (occurrence: DE)
  Receive Date: 20230223
  Receipt Date: 20230223
  Transmission Date: 20230418
  Serious: Yes (Hospitalization)
  Sender: FDA-Public Use
  Company Number: DE-009507513-2302DEU006795

PATIENT
  Age: 74 Year
  Sex: Female

DRUGS (2)
  1. PEMBROLIZUMAB [Suspect]
     Active Substance: PEMBROLIZUMAB
     Indication: Endometrial cancer
     Dosage: UNK
     Dates: start: 20220713, end: 20230103
  2. LENVATINIB MESYLATE [Suspect]
     Active Substance: LENVATINIB MESYLATE
     Indication: Endometrial cancer
     Dosage: 20 MG/DAY
     Route: 065
     Dates: start: 20220713, end: 20230103

REACTIONS (3)
  - Emphysema [Unknown]
  - Impaired healing [Unknown]
  - Fistula [Unknown]

NARRATIVE: CASE EVENT DATE: 20220830
